FAERS Safety Report 4652599-8 (Version None)
Quarter: 2005Q2

REPORT INFORMATION
  Report Type: 
  Country: None (occurrence: None)
  Receive Date: 20050502
  Receipt Date: 20050413
  Transmission Date: 20051028
  Serious: Yes (Hospitalization)
  Sender: FDA-Public Use
  Company Number: CH-2005-005429

PATIENT

DRUGS (3)
  1. ULTRAVIST 300 [Suspect]
     Indication: ARTERIOGRAM CORONARY
     Dosage: INTRAVENOUS
     Route: 042
  2. ULTRAVIST 300 [Suspect]
     Indication: CORONARY ARTERIAL STENT INSERTION
     Dosage: INTRAVENOUS
     Route: 042
  3. ACETYLCYSTEINE [Concomitant]

REACTIONS (3)
  - ACUTE RESPIRATORY DISTRESS SYNDROME [None]
  - POST PROCEDURAL COMPLICATION [None]
  - THROMBOSIS IN DEVICE [None]
